FAERS Safety Report 21976986 (Version 21)
Quarter: 2025Q1

REPORT INFORMATION
  Report Type: Report from Study
  Country: US (occurrence: US)
  Receive Date: 20230210
  Receipt Date: 20250119
  Transmission Date: 20250409
  Serious: Yes (Other)
  Sender: NOVARTIS
  Company Number: US-002147023-NVSC2023US026297

PATIENT
  Age: 47 Year
  Sex: Female

DRUGS (3)
  1. KESIMPTA [Suspect]
     Active Substance: OFATUMUMAB
     Indication: Relapsing multiple sclerosis
     Dosage: 20 MG, QMO
     Route: 058
     Dates: start: 20230101
  2. KESIMPTA [Suspect]
     Active Substance: OFATUMUMAB
     Dosage: 20 MG, QMO
     Route: 058
     Dates: start: 20230127
  3. MAYZENT [Suspect]
     Active Substance: SIPONIMOD
     Indication: Relapsing multiple sclerosis
     Dosage: 2 MG, QD (ON MAYZENT FOR ONLY 7 DAYS IN 2022)
     Route: 048
     Dates: start: 20220101

REACTIONS (22)
  - Optic neuritis [Unknown]
  - Visual impairment [Unknown]
  - Hypertension [Unknown]
  - Sialoadenitis [Unknown]
  - Pain [Recovered/Resolved]
  - Fatigue [Unknown]
  - Chest pain [Unknown]
  - Insomnia [Unknown]
  - Nausea [Unknown]
  - Respiratory tract infection [Unknown]
  - Salivary gland cyst [Unknown]
  - Osteoarthritis [Unknown]
  - Headache [Recovered/Resolved]
  - Back pain [Unknown]
  - Diarrhoea [Unknown]
  - Stress [Unknown]
  - Product packaging issue [Unknown]
  - Temperature intolerance [Unknown]
  - Product distribution issue [Unknown]
  - Influenza like illness [Unknown]
  - Pain [Unknown]
  - Headache [Unknown]

NARRATIVE: CASE EVENT DATE: 20230101
